FAERS Safety Report 11335730 (Version 1)
Quarter: 2015Q3

REPORT INFORMATION
  Report Type: Spontaneous
  Country: US (occurrence: US)
  Receive Date: 20150804
  Receipt Date: 20150804
  Transmission Date: 20151125
  Serious: No
  Sender: FDA-Public Use
  Company Number: US-ELI_LILLY_AND_COMPANY-US201507004028

PATIENT
  Age: 41 Year
  Sex: Female

DRUGS (1)
  1. HUMATROPE [Suspect]
     Active Substance: SOMATROPIN
     Indication: DWARFISM
     Dosage: 0.2 MG, UNKNOWN
     Route: 065
     Dates: start: 201410

REACTIONS (1)
  - Blood growth hormone abnormal [Unknown]

NARRATIVE: CASE EVENT DATE: 201410
